FAERS Safety Report 15105880 (Version 1)
Quarter: 2018Q3

REPORT INFORMATION
  Report Type: Spontaneous
  Country: IT (occurrence: IT)
  Receive Date: 20180704
  Receipt Date: 20180704
  Transmission Date: 20181010
  Serious: Yes (Hospitalization)
  Sender: FDA-Public Use
  Company Number: IT-ASTRAZENECA-2018SE82920

PATIENT
  Age: 82 Year
  Sex: Male

DRUGS (10)
  1. METOPROLOL. [Concomitant]
     Active Substance: METOPROLOL
  2. TORVAST [Concomitant]
     Active Substance: ATORVASTATIN
  3. METFORMIN [Concomitant]
     Active Substance: METFORMIN HYDROCHLORIDE
  4. BRILIQUE [Suspect]
     Active Substance: TICAGRELOR
     Indication: ACUTE MYOCARDIAL INFARCTION
     Route: 048
     Dates: start: 20180101, end: 20180511
  5. LASIX [Concomitant]
     Active Substance: FUROSEMIDE
  6. TOUJEO [Concomitant]
     Active Substance: INSULIN GLARGINE
  7. PANTORC [Concomitant]
     Active Substance: PANTOPRAZOLE SODIUM
  8. VALSARTAN. [Concomitant]
     Active Substance: VALSARTAN
  9. FLUXUM [Concomitant]
     Active Substance: PARNAPARIN SODIUM
  10. DOBETIN [Concomitant]

REACTIONS (2)
  - Dyspnoea [Unknown]
  - Asthenia [Unknown]

NARRATIVE: CASE EVENT DATE: 20180511
